FAERS Safety Report 13357658 (Version 1)
Quarter: 2017Q1

REPORT INFORMATION
  Report Type: Spontaneous
  Country: NL (occurrence: NL)
  Receive Date: 20170322
  Receipt Date: 20170322
  Transmission Date: 20170429
  Serious: Yes (Death, Hospitalization, Other)
  Sender: FDA-Public Use
  Company Number: NL-ACCORD-049311

PATIENT
  Age: 45 Year
  Sex: Female

DRUGS (7)
  1. EPINEPHRINE. [Suspect]
     Active Substance: EPINEPHRINE
     Indication: VENTRICULAR FIBRILLATION
  2. HYDROCHLOROTHIAZIDE. [Suspect]
     Active Substance: HYDROCHLOROTHIAZIDE
     Indication: PRODUCT USED FOR UNKNOWN INDICATION
  3. VALSARTAN. [Concomitant]
     Active Substance: VALSARTAN
  4. NOREPINEPHRINE [Concomitant]
     Active Substance: NOREPINEPHRINE\NOREPINEPHRINE BITARTRATE
     Indication: SINUS TACHYCARDIA
  5. CLOMIPRAMINE [Concomitant]
     Active Substance: CLOMIPRAMINE
  6. METHADONE [Concomitant]
     Active Substance: METHADONE HYDROCHLORIDE
  7. METOPROLOL. [Concomitant]
     Active Substance: METOPROLOL
     Indication: HYPERTENSION

REACTIONS (6)
  - Cardiac arrest [Recovered/Resolved]
  - Post-anoxic myoclonus [Unknown]
  - Hypokalaemia [Fatal]
  - Lactic acidosis [Unknown]
  - Condition aggravated [Fatal]
  - Ventricular fibrillation [Recovered/Resolved]
